FAERS Safety Report 7445113-5 (Version None)
Quarter: 2011Q2

REPORT INFORMATION
  Report Type: 
  Country: None (occurrence: None)
  Receive Date: 20110429
  Receipt Date: 20110419
  Transmission Date: 20111010
  Serious: Yes (Hospitalization)
  Sender: FDA-Public Use
  Company Number: US-AMGEN-USASP2011020542

PATIENT
  Age: 68 Year
  Sex: Female

DRUGS (1)
  1. ENBREL [Suspect]
     Indication: RHEUMATOID ARTHRITIS
     Dates: start: 20110119

REACTIONS (5)
  - DYSPNOEA [None]
  - COUGH [None]
  - LOCAL SWELLING [None]
  - OPEN WOUND [None]
  - RESPIRATORY TRACT CONGESTION [None]
